FAERS Safety Report 9097652 (Version 1)
Quarter: 2013Q1

REPORT INFORMATION
  Report Type: Spontaneous
  Country: US (occurrence: US)
  Receive Date: 20130212
  Receipt Date: 20130212
  Transmission Date: 20140127
  Serious: No
  Sender: FDA-Public Use
  Company Number: US-009507513-1301USA013671

PATIENT
  Age: 74 Year
  Sex: Male

DRUGS (2)
  1. TICE BCG LIVE [Suspect]
     Indication: BLADDER CANCER
     Dosage: UNK
     Route: 043
     Dates: start: 20130121
  2. TICE BCG LIVE [Suspect]
     Dosage: UNK
     Route: 043
     Dates: start: 20130128

REACTIONS (3)
  - Dysuria [Recovered/Resolved]
  - Micturition disorder [Recovered/Resolved]
  - Inappropriate schedule of drug administration [Unknown]
